FAERS Safety Report 5567494-X (Version None)
Quarter: 2007Q4

REPORT INFORMATION
  Report Type: 
  Country: None (occurrence: None)
  Receive Date: 20071219
  Receipt Date: 20071217
  Transmission Date: 20080405
  Serious: Yes (Hospitalization)
  Sender: FDA-Public Use
  Company Number: NZ-MERCK-0712AUS00306

PATIENT
  Sex: Female

DRUGS (4)
  1. FOSAMAX [Suspect]
     Route: 048
     Dates: start: 20071101
  2. PREDNISONE [Concomitant]
     Indication: ASTHMA
     Route: 065
  3. ATORVASTATIN CALCIUM [Concomitant]
     Indication: LIPIDS INCREASED
     Route: 065
  4. THEOPHYLLINE SODIUM GLYCINATE [Concomitant]
     Indication: ASTHMA
     Route: 065

REACTIONS (2)
  - FALL [None]
  - FEMUR FRACTURE [None]
